FAERS Safety Report 6031296-0 (Version None)
Quarter: 2008Q4

REPORT INFORMATION
  Report Type: 
  Country: None (occurrence: None)
  Receive Date: 20081224
  Receipt Date: 20080805
  Transmission Date: 20090506
  Serious: No
  Sender: FDA-Public Use
  Company Number: US-CVT-080050

PATIENT
  Age: 69 Year
  Sex: Female
  Weight: 53.1 kg

DRUGS (11)
  1. RANEXA [Suspect]
     Indication: ANGINA PECTORIS
     Dosage: 500 MG, BID, ORAL
     Route: 048
     Dates: start: 20080501
  2. RANEXA [Suspect]
     Indication: MICROVASCULAR ANGINA
     Dosage: 500 MG, BID, ORAL
     Route: 048
     Dates: start: 20080501
  3. ISOSORBIDE (ISOSORBIDE) [Concomitant]
  4. PAROXETINE HCL [Concomitant]
  5. DILTIAZEM [Concomitant]
  6. PREMPRO [Concomitant]
  7. HYDROCHLOROTHIAZIDE [Concomitant]
  8. LOVASTATIN [Concomitant]
  9. PLAVIX [Concomitant]
  10. METOPROLOL /00376901/ (METOPROLOL) [Concomitant]
  11. NITROSTAT [Concomitant]

REACTIONS (5)
  - APHTHOUS STOMATITIS [None]
  - DRY MOUTH [None]
  - DYSPHAGIA [None]
  - ORAL PAIN [None]
  - OROPHARYNGEAL PAIN [None]
